FAERS Safety Report 12142708 (Version 2)
Quarter: 2016Q1

REPORT INFORMATION
  Report Type: Other
  Country: GB (occurrence: GB)
  Receive Date: 20160303
  Receipt Date: 20160331
  Transmission Date: 20160526
  Serious: Yes (Hospitalization, Other)
  Sender: FDA-Public Use
  Company Number: GB-PFM-GB-2015-4394

PATIENT
  Sex: Female

DRUGS (5)
  1. VINORELBINE INN [Suspect]
     Active Substance: VINORELBINE TARTRATE
     Indication: METASTASES TO BONE
     Dosage: UNK
     Route: 048
     Dates: start: 20150909
  2. TRASTUZUMAB [Suspect]
     Active Substance: TRASTUZUMAB
     Indication: PRODUCT USED FOR UNKNOWN INDICATION
     Dosage: 600 MG, UNK, 1/3 WEEKS
     Route: 058
  3. RITUXIMAB [Concomitant]
     Active Substance: RITUXIMAB
     Indication: RHEUMATOID ARTHRITIS
     Route: 065
  4. BUCCASTEM [Concomitant]
     Indication: PRODUCT USED FOR UNKNOWN INDICATION
     Route: 065
  5. DENOSUMAB [Concomitant]
     Active Substance: DENOSUMAB
     Indication: METASTASES TO BONE
     Route: 065

REACTIONS (12)
  - Rash [Unknown]
  - Vomiting [Unknown]
  - Dehydration [Unknown]
  - Abdominal discomfort [Unknown]
  - Metastases to skin [None]
  - Metastases to bone [Unknown]
  - Dysphagia [Unknown]
  - Intentional product misuse [Unknown]
  - Nausea [Unknown]
  - Mass [Unknown]
  - Diarrhoea [Unknown]
  - Feeding disorder [None]
